FAERS Safety Report 9998124 (Version 3)
Quarter: 2015Q1

REPORT INFORMATION
  Report Type: Report from Study
  Country: CA (occurrence: CA)
  Receive Date: 20140311
  Receipt Date: 20150212
  Transmission Date: 20150721
  Serious: Yes (Hospitalization, Other)
  Sender: FDA-Public Use
  Company Number: CA-ABBVIE-12P-028-0999509-00

PATIENT
  Age: 22 Year
  Sex: Male

DRUGS (2)
  1. HUMIRA [Suspect]
     Active Substance: ADALIMUMAB
     Route: 058
     Dates: start: 20140302
  2. HUMIRA [Suspect]
     Active Substance: ADALIMUMAB
     Indication: CROHN^S DISEASE
     Route: 058
     Dates: start: 20051103, end: 201210

REACTIONS (8)
  - Bowel movement irregularity [Not Recovered/Not Resolved]
  - Intestinal resection [Unknown]
  - Abdominal pain [Not Recovered/Not Resolved]
  - Dehydration [Unknown]
  - Gastrointestinal infection [Unknown]
  - Vomiting [Not Recovered/Not Resolved]
  - Nausea [Not Recovered/Not Resolved]
  - Ileostomy [Unknown]

NARRATIVE: CASE EVENT DATE: 2012
